FAERS Safety Report 6286658-3 (Version None)
Quarter: 2009Q3

REPORT INFORMATION
  Report Type: 
  Country: None (occurrence: None)
  Receive Date: 20090728
  Receipt Date: 20090722
  Transmission Date: 20100115
  Serious: Yes (Other)
  Sender: FDA-Public Use
  Company Number: US-BRISTOL-MYERS SQUIBB COMPANY-14714364

PATIENT

DRUGS (1)
  1. ABILIFY [Suspect]

REACTIONS (1)
  - PANCYTOPENIA [None]
